FAERS Safety Report 9623937 (Version 4)
Quarter: 2013Q4

REPORT INFORMATION
  Report Type: Spontaneous
  Country: CA (occurrence: None)
  Receive Date: 20131010
  Receipt Date: 20131105
  Transmission Date: 20140711
  Serious: Yes (Other)
  Sender: FDA-Public Use
  Company Number: ACO_38894_2013

PATIENT
  Age: 66 Year
  Sex: Male

DRUGS (8)
  1. FAMPYRA [Suspect]
     Indication: GAIT DISTURBANCE
     Route: 048
     Dates: start: 20130919, end: 20130923
  2. ATACAND (CANDESARTAN CILEXETIL) [Concomitant]
  3. CARBAMAZEPINE (CARBAMAZEPINE) [Concomitant]
  4. GABAPENTIN [Concomitant]
  5. CELEBREX (CELECOXIB) [Concomitant]
  6. ASPIRIN (ACETYLSALICYLIC ACID) [Concomitant]
  7. METFORMIN (METFORMIN HYDROCHLORIDE) [Concomitant]
  8. PREDNISONE [Concomitant]

REACTIONS (2)
  - Convulsion [None]
  - Dizziness [None]
